FAERS Safety Report 4683606-4 (Version None)
Quarter: 2005Q2

REPORT INFORMATION
  Report Type: 
  Country: None (occurrence: None)
  Receive Date: 20050602
  Receipt Date: 20050210
  Transmission Date: 20051028
  Serious: No
  Sender: FDA-Public Use
  Company Number: 200324911BWH

PATIENT
  Age: 60 Year
  Sex: Male

DRUGS (8)
  1. LEVITRA [Suspect]
     Indication: ERECTILE DYSFUNCTION
     Dosage: 20 MG, QD, ORAL
     Route: 048
     Dates: start: 20030926
  2. LEVITRA [Suspect]
     Dosage: 20 MG, PRN, ORAL
     Route: 048
     Dates: start: 20030928
  3. VIAGRA [Concomitant]
  4. ATENOLOL [Concomitant]
  5. NIFEDIPINE [Concomitant]
  6. LISINOPRIL [Concomitant]
  7. PROTONIX [Concomitant]
  8. METOPROLOL [Concomitant]

REACTIONS (1)
  - ERECTILE DYSFUNCTION [None]
